FAERS Safety Report 7332249-2 (Version None)
Quarter: 2011Q1

REPORT INFORMATION
  Report Type: 
  Country: None (occurrence: None)
  Receive Date: 20110223
  Receipt Date: 20110210
  Transmission Date: 20110831
  Serious: Yes (Hospitalization, Disabling, Other)
  Sender: FDA-Public Use
  Company Number: 814826

PATIENT
  Age: 52 Year
  Sex: Male
  Weight: 86 kg

DRUGS (8)
  1. (METFORMINE) [Concomitant]
  2. GLYBURIDE [Concomitant]
  3. (FRACTAL) [Concomitant]
  4. JANUVIA [Concomitant]
  5. GEMCITABINE HYDROCHLORIDE [Suspect]
     Indication: PANCREATIC CARCINOMA
     Dosage: SEE IMAGE
     Route: 042
     Dates: start: 20101223, end: 20110113
  6. GEMCITABINE HYDROCHLORIDE [Suspect]
     Indication: PANCREATIC CARCINOMA
     Dosage: SEE IMAGE
     Route: 042
     Dates: start: 20101223, end: 20110113
  7. GEMCITABINE HYDROCHLORIDE [Suspect]
     Indication: PANCREATIC CARCINOMA
     Dosage: SEE IMAGE
     Route: 042
     Dates: start: 20100907
  8. (KARDEGIC) [Concomitant]

REACTIONS (4)
  - NECROSIS [None]
  - DEVICE OCCLUSION [None]
  - CYANOSIS [None]
  - FEMORAL ARTERY OCCLUSION [None]
